FAERS Safety Report 8925100 (Version 1)
Quarter: 2012Q4

REPORT INFORMATION
  Report Type: 
  Country: CA (occurrence: CA)
  Receive Date: 20121126
  Receipt Date: 20121126
  Transmission Date: 20130627
  Serious: Yes (Death, Hospitalization, Other)
  Sender: FDA-Public Use
  Company Number: CA-CELGENEUS-028-21880-08040328

PATIENT

DRUGS (7)
  1. REVLIMID [Suspect]
     Indication: MULTIPLE MYELOMA
     Dosage: 10 Milligram
     Route: 048
  2. REVLIMID [Suspect]
     Dosage: 15 Milligram
     Route: 048
  3. MELPHALAN [Suspect]
     Indication: MULTIPLE MYELOMA
     Dosage: 9 milligram/sq. meter
     Route: 065
  4. MELPHALAN [Suspect]
     Dosage: 4 milligram/sq. meter
     Route: 065
  5. MELPHALAN [Suspect]
     Dosage: 6 milligram/sq. meter
     Route: 065
  6. MELPHALAN [Suspect]
     Dosage: 5 milligram/sq. meter
     Route: 065
  7. ASA [Concomitant]
     Indication: THROMBOEMBOLISM PROPHYLAXIS
     Dosage: 81 Milligram
     Route: 065

REACTIONS (13)
  - Ischaemic stroke [Fatal]
  - Neutropenic sepsis [Fatal]
  - Delirium [Unknown]
  - IIIrd nerve paralysis [Unknown]
  - Hypercalcaemia [Unknown]
  - Neutropenia [Unknown]
  - Pulmonary oedema [Unknown]
  - Febrile neutropenia [Unknown]
  - Thrombocytopenia [Unknown]
  - Fatigue [Unknown]
  - Dyspnoea [Unknown]
  - Renal failure [Unknown]
  - Neuropathy peripheral [Unknown]
